FAERS Safety Report 24106809 (Version 1)
Quarter: 2024Q3

REPORT INFORMATION
  Report Type: Spontaneous
  Country: US (occurrence: US)
  Receive Date: 20240717
  Receipt Date: 20240717
  Transmission Date: 20241016
  Serious: Yes (Other)
  Sender: BRISTOL MYERS SQUIBB
  Company Number: US-BRISTOL-MYERS SQUIBB COMPANY-2024-112488

PATIENT
  Age: 72 Year
  Sex: Male

DRUGS (1)
  1. POMALYST [Suspect]
     Active Substance: POMALIDOMIDE
     Indication: Plasma cell myeloma
     Dosage: TAKE 1 CAPSULE BY MOUTH 1 TIME A DAY (FOR 21 DAYS), OFF ON DAYS 22 TO 28 OF EACH 28DAY CYCLE
     Route: 048
     Dates: start: 202301

REACTIONS (2)
  - Therapy non-responder [Unknown]
  - Plasma cell myeloma [Unknown]
